FAERS Safety Report 8062283-9 (Version None)
Quarter: 2012Q1

REPORT INFORMATION
  Report Type: 
  Country: None (occurrence: None)
  Receive Date: 20120123
  Receipt Date: 20120120
  Transmission Date: 20120608
  Serious: No
  Sender: FDA-Public Use
  Company Number: US-PFIZER INC-2012017452

PATIENT
  Sex: Female
  Weight: 58.957 kg

DRUGS (7)
  1. LANTUS [Concomitant]
     Indication: DIABETES MELLITUS
     Dosage: 50 IU, DAILY
  2. ENALAPRIL [Concomitant]
     Indication: HYPERTENSION
     Dosage: 20 MG, DAILY
  3. CHANTIX [Suspect]
     Indication: SMOKING CESSATION THERAPY
     Dosage: UNK
     Route: 048
     Dates: start: 20110101
  4. CHANTIX [Suspect]
     Dosage: 1 MG, 2X/DAY
     Route: 048
  5. METFORMIN [Concomitant]
     Indication: DIABETES MELLITUS
     Dosage: 100 MG, 2X/DAY
  6. GABAPENTIN [Concomitant]
     Indication: NEURALGIA
     Dosage: 100 MG, 2X/DAY
  7. MELOXICAM [Concomitant]
     Indication: ANTIINFLAMMATORY THERAPY
     Dosage: 7.5 MG, 2X/DAY

REACTIONS (1)
  - DYSGEUSIA [None]
